FAERS Safety Report 8816810 (Version 1)
Quarter: 2012Q4

REPORT INFORMATION
  Report Type: Spontaneous
  Country: ES (occurrence: None)
  Receive Date: 20121001
  Receipt Date: 20121001
  Transmission Date: 20130627
  Serious: Yes (Hospitalization)
  Sender: FDA-Public Use
  Company Number: 2012AP003166

PATIENT
  Age: 26 Year
  Sex: Male

DRUGS (6)
  1. QUETIAPINE [Suspect]
     Indication: DRUG USE FOR UNKNOWN INDICATION
  2. RISPERIDONE [Suspect]
  3. TOPIRAMATE [Suspect]
  4. RIVOTRIL (CLONAZEPAM) [Suspect]
     Route: 048
  5. FLURAZEPAM [Suspect]
  6. BIPERIDEN [Suspect]

REACTIONS (4)
  - Rhabdomyolysis [None]
  - Drug interaction [None]
  - Irritability [None]
  - Abdominal pain [None]
